FAERS Safety Report 25264146 (Version 2)
Quarter: 2025Q2

REPORT INFORMATION
  Report Type: Spontaneous
  Country: PE (occurrence: PE)
  Receive Date: 20250502
  Receipt Date: 20250507
  Transmission Date: 20250717
  Serious: Yes (Death, Other)
  Sender: AMGEN
  Company Number: PE-AMGEN-PERSP2025086543

PATIENT
  Age: 16 Year
  Sex: Female

DRUGS (2)
  1. BLINCYTO [Suspect]
     Active Substance: BLINATUMOMAB
     Indication: Acute lymphocytic leukaemia recurrent
     Dosage: 5 MICROGRAM/SQ. METER, QD (CONTINUOUS INFUSION)
     Route: 040
     Dates: start: 20250410, end: 202504
  2. BLINCYTO [Suspect]
     Active Substance: BLINATUMOMAB
     Dosage: 15 MICROGRAM/SQ. METER, QD (CONTINUOUS INFUSION)
     Route: 040
     Dates: start: 20250418, end: 20250420

REACTIONS (10)
  - Acute lymphocytic leukaemia recurrent [Fatal]
  - Generalised tonic-clonic seizure [Not Recovered/Not Resolved]
  - Neurotoxicity [Not Recovered/Not Resolved]
  - Loss of consciousness [Not Recovered/Not Resolved]
  - Thrombocytopenia [Not Recovered/Not Resolved]
  - Encephalopathy [Not Recovered/Not Resolved]
  - Leukocytosis [Not Recovered/Not Resolved]
  - Bone pain [Not Recovered/Not Resolved]
  - Tremor [Not Recovered/Not Resolved]
  - Anaemia [Not Recovered/Not Resolved]

NARRATIVE: CASE EVENT DATE: 20250401
